FAERS Safety Report 11877999 (Version 2)
Quarter: 2016Q3

REPORT INFORMATION
  Report Type: Spontaneous
  Country: US (occurrence: US)
  Receive Date: 20151230
  Receipt Date: 20160928
  Transmission Date: 20161109
  Serious: Yes (Hospitalization)
  Sender: FDA-Public Use
  Company Number: US-TEVA-621701USA

PATIENT
  Age: 72 Year
  Sex: Female
  Weight: 110 kg

DRUGS (24)
  1. CARVEDILOL. [Suspect]
     Active Substance: CARVEDILOL
     Indication: HYPERTENSION
     Dosage: 50 MILLIGRAM DAILY;
     Route: 048
     Dates: start: 201412
  2. COQ10 ENZYME [Concomitant]
  3. CRESTOR [Concomitant]
     Active Substance: ROSUVASTATIN CALCIUM
  4. VITAMIN B12 [Concomitant]
     Active Substance: CYANOCOBALAMIN
  5. BIOTIN [Concomitant]
     Active Substance: BIOTIN
  6. FERROUS SULFATE. [Concomitant]
     Active Substance: FERROUS SULFATE
  7. TOVIAZ [Concomitant]
     Active Substance: FESOTERODINE FUMARATE
  8. HUMALOG [Concomitant]
     Active Substance: INSULIN LISPRO
  9. LEVEMIR [Concomitant]
     Active Substance: INSULIN DETEMIR
  10. COLACE [Concomitant]
     Active Substance: DOCUSATE SODIUM
  11. GABAPENTIN. [Concomitant]
     Active Substance: GABAPENTIN
  12. NEXIUM [Concomitant]
     Active Substance: ESOMEPRAZOLE MAGNESIUM
     Dates: start: 20140605, end: 20140920
  13. HYDRALAZINE [Suspect]
     Active Substance: HYDRALAZINE HYDROCHLORIDE
     Indication: HYPERTENSION
     Dosage: 50 MILLIGRAM DAILY;
     Route: 048
     Dates: start: 201507, end: 20151111
  14. OMEPRAZOLE. [Concomitant]
     Active Substance: OMEPRAZOLE
  15. MAGNESIUM [Concomitant]
     Active Substance: MAGNESIUM
  16. NITROGLYCERINE [Concomitant]
     Active Substance: NITROGLYCERIN
  17. ELIQUIS [Concomitant]
     Active Substance: APIXABAN
  18. NAPROXEN. [Suspect]
     Active Substance: NAPROXEN
     Indication: RHEUMATOID ARTHRITIS
  19. METFORMIN [Concomitant]
     Active Substance: METFORMIN HYDROCHLORIDE
  20. AMIODARONE [Concomitant]
     Active Substance: AMIODARONE
  21. FLONASE [Concomitant]
     Active Substance: FLUTICASONE PROPIONATE
  22. LISINOPRIL. [Suspect]
     Active Substance: LISINOPRIL
     Indication: HYPERTENSION
     Dosage: 40 MILLIGRAM DAILY;
     Route: 048
     Dates: start: 2012, end: 20151111
  23. CALCIUM + VITAMIN D [Concomitant]
     Active Substance: CALCIUM\VITAMIN D
  24. NAPROXEN. [Suspect]
     Active Substance: NAPROXEN
     Indication: OSTEOARTHRITIS
     Dates: start: 20140605, end: 20140920

REACTIONS (1)
  - Syncope [Recovered/Resolved]

NARRATIVE: CASE EVENT DATE: 20151110
